FAERS Safety Report 10083545 (Version 1)
Quarter: 2014Q2

REPORT INFORMATION
  Report Type: Spontaneous
  Country: TW (occurrence: None)
  Receive Date: 20140415
  Receipt Date: 20140415
  Transmission Date: 20141212
  Serious: Yes (Other)
  Sender: FDA-Public Use
  Company Number: 2014-TW-0003

PATIENT
  Age: 52 Year
  Sex: Female

DRUGS (4)
  1. SANCUSO [Suspect]
     Indication: PROPHYLAXIS OF NAUSEA AND VOMITING
     Route: 062
     Dates: start: 20140326, end: 20140328
  2. AVASTIN (BEVACIZUMAB) [Concomitant]
  3. CISPLATIN [Concomitant]
  4. NAVELBINE [Concomitant]

REACTIONS (2)
  - Hypertension [None]
  - Headache [None]
